FAERS Safety Report 7757815 (Version 7)
Quarter: 2013Q2

REPORT INFORMATION
  Report Type: Report from Study
  Country: BR (occurrence: BR)
  Receive Date: 20110112
  Receipt Date: 20130424
  Transmission Date: 20140414
  Serious: Yes (Other)
  Sender: FDA-Public Use
  Company Number: BR-ROCHE-752346

PATIENT
  Age: 55 Year
  Sex: Male
  Weight: 126 kg

DRUGS (13)
  1. ACTEMRA [Suspect]
     Indication: RHEUMATOID ARTHRITIS
     Dosage: FORM: INFUSION
     Route: 042
     Dates: start: 20100201, end: 201101
  2. ACTEMRA [Suspect]
     Route: 065
     Dates: start: 20110404, end: 201109
  3. ACTEMRA [Suspect]
     Route: 065
  4. ACTEMRA [Suspect]
     Route: 065
  5. ACTEMRA [Suspect]
     Route: 065
  6. ACTEMRA [Suspect]
     Route: 065
  7. ACTEMRA [Suspect]
     Route: 065
  8. ZESTRIL [Concomitant]
     Indication: HYPERTENSION
  9. NIMESULIDE [Concomitant]
     Indication: PAIN
     Route: 065
  10. PRESSAT [Concomitant]
     Route: 065
  11. PREDSIM [Concomitant]
  12. HALOPERIDOL [Concomitant]
  13. OMEPRAZOLE [Concomitant]

REACTIONS (14)
  - Oedema peripheral [Recovered/Resolved]
  - Infection [Recovered/Resolved]
  - Fatigue [Recovered/Resolved]
  - Impatience [Recovered/Resolved]
  - Somnolence [Recovered/Resolved]
  - Neutropenia [Recovered/Resolved]
  - Throat irritation [Recovered/Resolved]
  - Decreased immune responsiveness [Not Recovered/Not Resolved]
  - Weight increased [Recovering/Resolving]
  - Obesity surgery [Unknown]
  - Arthritis [Recovering/Resolving]
  - Influenza [Unknown]
  - Gastrointestinal infection [Recovered/Resolved]
  - Rheumatoid arthritis [Recovering/Resolving]
